FAERS Safety Report 5900900-7 (Version None)
Quarter: 2008Q3

REPORT INFORMATION
  Report Type: 
  Country: None (occurrence: None)
  Receive Date: 20080929
  Receipt Date: 20080922
  Transmission Date: 20090109
  Serious: Yes (Hospitalization)
  Sender: FDA-Public Use
  Company Number: PHHY2008DE18757

PATIENT
  Sex: Female

DRUGS (1)
  1. EXELON [Suspect]
     Indication: DEMENTIA
     Dosage: 4.6 MG/24 HR
     Route: 062
     Dates: start: 20080809

REACTIONS (5)
  - ANXIETY [None]
  - CONDITION AGGRAVATED [None]
  - DEPRESSED MOOD [None]
  - RESTLESSNESS [None]
  - SLEEP DISORDER [None]
